FAERS Safety Report 8999214 (Version 1)
Quarter: 2013Q1

REPORT INFORMATION
  Report Type: Spontaneous
  Country: US (occurrence: US)
  Receive Date: 20130103
  Receipt Date: 20130103
  Transmission Date: 20140127
  Serious: Yes (Other)
  Sender: FDA-Public Use
  Company Number: US-ELI_LILLY_AND_COMPANY-US201212008270

PATIENT
  Age: 59 Year
  Sex: Female

DRUGS (2)
  1. CYMBALTA [Suspect]
     Indication: DEPRESSION
     Dosage: 20 MG, QD
  2. XANAX [Concomitant]
     Dosage: UNK, PRN

REACTIONS (3)
  - Liver disorder [Unknown]
  - Chest discomfort [Unknown]
  - Gastrointestinal disorder [Unknown]
